FAERS Safety Report 8985123 (Version 2)
Quarter: 2013Q1

REPORT INFORMATION
  Report Type: Spontaneous
  Country: US (occurrence: US)
  Receive Date: 20121226
  Receipt Date: 20130116
  Transmission Date: 20140127
  Serious: Yes (Life-Threatening, Hospitalization)
  Sender: FDA-Public Use
  Company Number: PHEH2012US025177

PATIENT
  Age: 72 Year
  Sex: Female

DRUGS (12)
  1. EXELON PATCH [Suspect]
     Indication: DEMENTIA ALZHEIMER^S TYPE
     Dosage: 4.6 MG, UNK
     Route: 062
  2. EXELON PATCH [Suspect]
     Dosage: 9.5 MG, UNK
     Route: 062
  3. OMEPRAZOLE [Concomitant]
  4. SUCRALFATE [Concomitant]
  5. WARFARIN [Concomitant]
  6. FERROUS SULFATE [Concomitant]
  7. STOOL SOFTENER [Concomitant]
  8. SYNTHROID [Concomitant]
  9. SOTALOL [Concomitant]
  10. SERTRALINE [Concomitant]
  11. SIMVASTATIN [Concomitant]
  12. NAMENDA [Concomitant]

REACTIONS (9)
  - Blood glucose decreased [Unknown]
  - Cerebrovascular accident [Unknown]
  - Unresponsive to stimuli [Unknown]
  - Ankle fracture [Unknown]
  - Head injury [Unknown]
  - Fall [Unknown]
  - Blood pressure decreased [Unknown]
  - Hypophagia [Unknown]
  - Decreased appetite [Recovering/Resolving]
